FAERS Safety Report 6695980-8 (Version None)
Quarter: 2010Q2

REPORT INFORMATION
  Report Type: 
  Country: None (occurrence: None)
  Receive Date: 20100426
  Receipt Date: 20100416
  Transmission Date: 20101027
  Serious: Yes (Life-Threatening, Hospitalization)
  Sender: FDA-Public Use
  Company Number: FR-SANOFI-AVENTIS-2010SA022165

PATIENT
  Age: 79 Year
  Sex: Male

DRUGS (16)
  1. RIFADIN [Suspect]
     Indication: POSTOPERATIVE WOUND INFECTION
     Route: 048
     Dates: start: 20091219, end: 20100125
  2. TAVANIC [Suspect]
     Indication: POSTOPERATIVE WOUND INFECTION
     Route: 048
     Dates: start: 20091219, end: 20100125
  3. IODOFORM [Suspect]
     Indication: POSTOPERATIVE WOUND INFECTION
     Route: 051
     Dates: start: 20091219, end: 20100212
  4. BETADINE ^PURDUE^ [Suspect]
     Indication: POSTOPERATIVE WOUND INFECTION
     Route: 050
     Dates: start: 20091219
  5. KARDEGIC [Concomitant]
     Indication: DRUG USE FOR UNKNOWN INDICATION
     Route: 048
  6. DOLIPRANE [Concomitant]
     Indication: DRUG USE FOR UNKNOWN INDICATION
     Route: 048
  7. GLUCOPHAGE [Concomitant]
     Route: 065
  8. AMAREL [Concomitant]
     Indication: DRUG USE FOR UNKNOWN INDICATION
     Route: 048
  9. TAREG [Concomitant]
     Indication: DRUG USE FOR UNKNOWN INDICATION
     Dosage: DOSE:1 UNIT(S)
     Route: 048
  10. TEGRETOL [Concomitant]
     Indication: DRUG USE FOR UNKNOWN INDICATION
     Route: 048
  11. MODAFINIL [Concomitant]
     Indication: DRUG USE FOR UNKNOWN INDICATION
     Dosage: DOSE:2 UNIT(S)
     Route: 065
  12. LANSOPRAZOLE [Concomitant]
     Indication: DRUG USE FOR UNKNOWN INDICATION
     Dosage: DOSE:1 UNIT(S)
     Route: 048
  13. LASIX [Concomitant]
     Indication: DRUG USE FOR UNKNOWN INDICATION
     Route: 048
  14. ATARAX [Concomitant]
     Indication: DRUG USE FOR UNKNOWN INDICATION
     Route: 048
  15. TOBREX [Concomitant]
     Indication: DRUG USE FOR UNKNOWN INDICATION
     Route: 065
  16. LACRIGEL [Concomitant]
     Indication: DRUG USE FOR UNKNOWN INDICATION
     Route: 065

REACTIONS (8)
  - ALTERED STATE OF CONSCIOUSNESS [None]
  - MALAISE [None]
  - METABOLIC ACIDOSIS [None]
  - PRURITUS [None]
  - RASH [None]
  - RENAL FAILURE ACUTE [None]
  - SHOCK [None]
  - VOMITING [None]
